FAERS Safety Report 10748544 (Version 1)
Quarter: 2015Q1

REPORT INFORMATION
  Report Type: Report from Study
  Country: US (occurrence: None)
  Receive Date: 20150120
  Receipt Date: 20150120
  Transmission Date: 20150721
  Serious: Yes (Other)
  Sender: FDA-Public Use
  Company Number: AEGR000921

PATIENT
  Age: 72 Year
  Sex: Female

DRUGS (12)
  1. CILOSTAZOL. [Concomitant]
     Active Substance: CILOSTAZOL
  2. SPIRONOLACTONE. [Concomitant]
     Active Substance: SPIRONOLACTONE
  3. CLONIDINE (CLONIDINE HYDROCHLORIDE) [Concomitant]
  4. LOSARTAN [Concomitant]
     Active Substance: LOSARTAN
  5. JUXTAPID [Suspect]
     Active Substance: LOMITAPIDE MESYLATE
     Indication: TYPE IIA HYPERLIPIDAEMIA
     Dates: start: 20130301, end: 20130326
  6. FENOFIBRATE. [Concomitant]
     Active Substance: FENOFIBRATE
  7. ISOSORBIDE DINITRATE. [Concomitant]
     Active Substance: ISOSORBIDE DINITRATE
  8. CLOPIDOGREL [Concomitant]
     Active Substance: CLOPIDOGREL BISULFATE
  9. LEVOTHYROXINE [Concomitant]
     Active Substance: LEVOTHYROXINE
  10. PROPAFENONE. [Concomitant]
     Active Substance: PROPAFENONE
  11. CHLORTHALIDONE. [Concomitant]
     Active Substance: CHLORTHALIDONE
  12. OMEPRAZOLE. [Concomitant]
     Active Substance: OMEPRAZOLE

REACTIONS (2)
  - Diarrhoea [None]
  - Arrhythmia [None]

NARRATIVE: CASE EVENT DATE: 20131114
